FAERS Safety Report 6466596-3 (Version None)
Quarter: 2009Q4

REPORT INFORMATION
  Report Type: 
  Country: None (occurrence: None)
  Receive Date: 20091202
  Receipt Date: 20091124
  Transmission Date: 20100525
  Serious: Yes (Hospitalization)
  Sender: FDA-Public Use
  Company Number: ES-SANOFI-AVENTIS-2009SA004429

PATIENT
  Age: 21 Year
  Sex: Female

DRUGS (3)
  1. INSULIN GLARGINE [Suspect]
     Indication: TYPE 1 DIABETES MELLITUS
     Route: 058
     Dates: start: 20091010
  2. SOLOSTAR [Suspect]
  3. NOVORAPID [Suspect]
     Indication: DIABETIC KETOACIDOSIS
     Dates: start: 20091010

REACTIONS (2)
  - DIABETIC KETOACIDOSIS [None]
  - INAPPROPRIATE SCHEDULE OF DRUG ADMINISTRATION [None]
